FAERS Safety Report 4826368-X (Version None)
Quarter: 2005Q4

REPORT INFORMATION
  Report Type: 
  Country: None (occurrence: None)
  Receive Date: 20051111
  Receipt Date: 20051110
  Transmission Date: 20060501
  Serious: Yes (Other)
  Sender: FDA-Public Use
  Company Number: PHBS2005JP16549

PATIENT
  Age: 57 Year
  Sex: Male

DRUGS (5)
  1. BASEN [Concomitant]
     Dosage: 0.9 MG, UNK
     Route: 048
  2. URSODEOXYCHOLIC ACID [Concomitant]
     Dosage: 300 MG, UNK
     Route: 048
  3. GASCON [Concomitant]
     Dosage: 120 MG, UNK
     Route: 048
  4. NEUROVITAN [Concomitant]
     Dosage: 3 DF, UNK
     Route: 048
  5. DIOVAN [Suspect]
     Dosage: 80 MG, QD
     Route: 048
     Dates: start: 20021210

REACTIONS (1)
  - ELECTROCARDIOGRAM QT PROLONGED [None]
